FAERS Safety Report 18158478 (Version 3)
Quarter: 2021Q1

REPORT INFORMATION
  Report Type: Spontaneous
  Country: US (occurrence: US)
  Receive Date: 20200817
  Receipt Date: 20210224
  Transmission Date: 20210419
  Serious: Yes (Other)
  Sender: FDA-Public Use
  Company Number: US-GILEAD-2020-0490412

PATIENT
  Sex: Male
  Weight: 104.31 kg

DRUGS (44)
  1. ESOMEPRAZOLE. [Concomitant]
     Active Substance: ESOMEPRAZOLE MAGNESIUM
  2. ERGOCALCIFEROL. [Concomitant]
     Active Substance: ERGOCALCIFEROL
  3. PSEUDOEPHEDRINE. [Concomitant]
     Active Substance: PSEUDOEPHEDRINE HYDROCHLORIDE
  4. TRUVADA [Suspect]
     Active Substance: EMTRICITABINE\TENOFOVIR DISOPROXIL FUMARATE
     Dosage: UNK
     Route: 048
     Dates: start: 2004, end: 2016
  5. TRIUMEQ [Concomitant]
     Active Substance: ABACAVIR SULFATE\DOLUTEGRAVIR SODIUM\LAMIVUDINE
  6. IBUPROFEN. [Concomitant]
     Active Substance: IBUPROFEN
  7. RANITIDINE. [Concomitant]
     Active Substance: RANITIDINE
  8. DIPHENOXYLATE/ATROPINE [Concomitant]
     Active Substance: ATROPINE\DIPHENOXYLATE
  9. FENTANYL. [Concomitant]
     Active Substance: FENTANYL
  10. SULFAMETHOXAZOLE [Concomitant]
     Active Substance: SULFAMETHOXAZOLE
  11. Q?PAP [Concomitant]
     Active Substance: ACETAMINOPHEN
  12. CEFAZOLIN [Concomitant]
     Active Substance: CEFAZOLIN
  13. HYDROXYZINE [Concomitant]
     Active Substance: HYDROXYZINE HYDROCHLORIDE
  14. HYDROCHLOROTHIAZIDE. [Concomitant]
     Active Substance: HYDROCHLOROTHIAZIDE
  15. SUSTIVA [Concomitant]
     Active Substance: EFAVIRENZ
  16. CHLORTHALIDONE. [Concomitant]
     Active Substance: CHLORTHALIDONE
  17. LISINOPRIL. [Concomitant]
     Active Substance: LISINOPRIL
  18. CLINDAMYCIN. [Concomitant]
     Active Substance: CLINDAMYCIN
  19. COLACE [Concomitant]
     Active Substance: DOCUSATE SODIUM
  20. OXYCODONE AND ACETAMINOPHEN [Concomitant]
     Active Substance: ACETAMINOPHEN\OXYCODONE HYDROCHLORIDE
  21. AMLODIPINE BESYLATE. [Concomitant]
     Active Substance: AMLODIPINE BESYLATE
  22. EPINEPHRINE. [Concomitant]
     Active Substance: EPINEPHRINE
  23. VITAMIN D2 [Concomitant]
     Active Substance: ERGOCALCIFEROL
  24. HYDROCODONE/ACETAMINOPHEN [Concomitant]
     Active Substance: ACETAMINOPHEN\HYDROCODONE
  25. LORATADINE. [Concomitant]
     Active Substance: LORATADINE
  26. ATRIPLA [Suspect]
     Active Substance: EFAVIRENZ\EMTRICITABINE\TENOFOVIR DISOPROXIL FUMARATE
     Indication: HIV INFECTION
     Dosage: UNK
     Route: 048
     Dates: start: 20100616, end: 20161124
  27. ACETAMINOPHEN. [Concomitant]
     Active Substance: ACETAMINOPHEN
  28. NEXIUM I.V. [Concomitant]
     Active Substance: ESOMEPRAZOLE SODIUM
  29. DIPHENHYDRAMINE. [Concomitant]
     Active Substance: DIPHENHYDRAMINE
  30. ONDANSETRON [Concomitant]
     Active Substance: ONDANSETRON
  31. VENTOLIN [Concomitant]
     Active Substance: ALBUTEROL SULFATE
  32. ARNUITY ELLIPTA [Concomitant]
     Active Substance: FLUTICASONE FUROATE
  33. HEPARIN SODIUM. [Concomitant]
     Active Substance: HEPARIN SODIUM
  34. MIDAZOLAM. [Concomitant]
     Active Substance: MIDAZOLAM
  35. VANCOMYCIN [Concomitant]
     Active Substance: VANCOMYCIN
  36. TRUVADA [Suspect]
     Active Substance: EMTRICITABINE\TENOFOVIR DISOPROXIL FUMARATE
     Indication: HIV INFECTION
     Dosage: UNK
     Route: 048
     Dates: start: 2012, end: 2018
  37. ATROVENT HFA [Concomitant]
     Active Substance: IPRATROPIUM BROMIDE
  38. MAPAP [Concomitant]
     Active Substance: ACETAMINOPHEN
  39. TRAMADOL. [Concomitant]
     Active Substance: TRAMADOL
  40. VALSARTAN. [Concomitant]
     Active Substance: VALSARTAN
  41. VITAMIN D3 [Concomitant]
     Active Substance: CHOLECALCIFEROL
  42. AZITHROMYCIN ANHYDROUS. [Concomitant]
     Active Substance: AZITHROMYCIN ANHYDROUS
  43. EFAVIRENZ. [Concomitant]
     Active Substance: EFAVIRENZ
  44. PENICILLIN V POTASSIUM. [Concomitant]
     Active Substance: PENICILLIN V POTASSIUM

REACTIONS (5)
  - Pain [Not Recovered/Not Resolved]
  - Anxiety [Unknown]
  - Emotional distress [Not Recovered/Not Resolved]
  - Anhedonia [Unknown]
  - Chronic kidney disease [Not Recovered/Not Resolved]

NARRATIVE: CASE EVENT DATE: 2016
